FAERS Safety Report 26131679 (Version 1)
Quarter: 2025Q4

REPORT INFORMATION
  Report Type: Spontaneous
  Country: IN (occurrence: IN)
  Receive Date: 20251208
  Receipt Date: 20251208
  Transmission Date: 20260118
  Serious: Yes (Other)
  Sender: CIPLA
  Company Number: IN-CIPLA LTD.-2025IN15264

PATIENT

DRUGS (1)
  1. ANASTROZOLE [Suspect]
     Active Substance: ANASTROZOLE
     Indication: Body modification
     Dosage: UNK, (HIGHER-THAN-RECOMMENDED AMOUNTS)
     Route: 065

REACTIONS (5)
  - Erectile dysfunction [Unknown]
  - Sexual dysfunction [Unknown]
  - Hormone level abnormal [Unknown]
  - Vascular malformation [Unknown]
  - Off label use [Unknown]
